FAERS Safety Report 6179740-2 (Version None)
Quarter: 2009Q2

REPORT INFORMATION
  Report Type: 
  Country: None (occurrence: None)
  Receive Date: 20090505
  Receipt Date: 20090423
  Transmission Date: 20091009
  Serious: Yes (Other)
  Sender: FDA-Public Use
  Company Number: BE-WYE-H09094909

PATIENT
  Sex: Male
  Weight: 67.5 kg

DRUGS (2)
  1. BENEFIX [Suspect]
     Indication: FACTOR IX DEFICIENCY
     Dosage: 3000 UNIT EVERY 1 WK
     Route: 042
     Dates: start: 20050113, end: 20071023
  2. BENEFIX [Suspect]
     Dosage: UNSPECIFIED DOSE INCREASE
     Route: 042
     Dates: start: 20071024

REACTIONS (1)
  - FACTOR IX INHIBITION [None]
